FAERS Safety Report 18100407 (Version 1)
Quarter: 2020Q3

REPORT INFORMATION
  Report Type: Spontaneous
  Country: US (occurrence: US)
  Receive Date: 20200731
  Receipt Date: 20200731
  Transmission Date: 20201103
  Serious: Yes (Other)
  Sender: FDA-Public Use
  Company Number: US-ALLERGAN-2024336US

PATIENT
  Sex: Female

DRUGS (1)
  1. LINZESS [Suspect]
     Active Substance: LINACLOTIDE
     Indication: IRRITABLE BOWEL SYNDROME
     Dosage: 145 ?G, QAM, ON EMPTY STOMACH
     Route: 048
     Dates: start: 202001

REACTIONS (9)
  - Thyroidectomy [Unknown]
  - Intentional dose omission [Unknown]
  - Parathyroidectomy [Unknown]
  - Urine odour abnormal [Recovered/Resolved]
  - Off label use [Unknown]
  - Blood calcium increased [Unknown]
  - Procedural pain [Not Recovered/Not Resolved]
  - Urinary tract infection [Recovered/Resolved]
  - Diarrhoea [Not Recovered/Not Resolved]

NARRATIVE: CASE EVENT DATE: 202001
